FAERS Safety Report 8455022-0 (Version None)
Quarter: 2012Q2

REPORT INFORMATION
  Report Type: 
  Country: None (occurrence: None)
  Receive Date: 20120615
  Receipt Date: 20120615
  Transmission Date: 20120825
  Serious: Yes (Life-Threatening, Disabling)
  Sender: FDA-Public Use
  Company Number: None

PATIENT
  Sex: Male
  Weight: 92.9874 kg

DRUGS (1)
  1. ZYPREXA [Suspect]
     Indication: SCHIZOPHRENIA
     Dosage: 15 MG ZYPREXA EVERY NIGHT
     Dates: start: 19960101

REACTIONS (2)
  - HEPATIC STEATOSIS [None]
  - GLUCOSE TOLERANCE IMPAIRED [None]
